FAERS Safety Report 21963263 (Version 1)
Quarter: 2023Q1

REPORT INFORMATION
  Report Type: Spontaneous
  Country: US (occurrence: US)
  Receive Date: 20230207
  Receipt Date: 20230207
  Transmission Date: 20230418
  Serious: No
  Sender: FDA-Public Use
  Company Number: US-AMRYT PHARMACEUTICALS DAC-AEGR005838

PATIENT
  Sex: Female
  Weight: 35.011 kg

DRUGS (12)
  1. MYALEPT [Suspect]
     Active Substance: METRELEPTIN
     Indication: Congenital generalised lipodystrophy
     Dosage: 2.1 MILLIGRAM (0.42ML OR 42 UNITS), QD
     Route: 058
     Dates: start: 20220321
  2. MYALEPT [Suspect]
     Active Substance: METRELEPTIN
     Indication: Lipodystrophy acquired
     Dosage: 2.1 MILLIGRAM (0.42 ML OR 42 UNITS)
     Route: 058
  3. MYALEPT [Suspect]
     Active Substance: METRELEPTIN
     Dosage: 2.1 MILLIGRAM, QD
     Route: 058
  4. MYALEPT [Suspect]
     Active Substance: METRELEPTIN
     Dosage: 0.5 MILLIGRAM, QD
  5. MYALEPT [Suspect]
     Active Substance: METRELEPTIN
     Dosage: 2.1 MILLIGRAM, (0.42 ML OR 42 UNITS) QD
     Route: 058
  6. VIACTIV [CALCIUM;COLECALCIFEROL] [Concomitant]
     Indication: Product used for unknown indication
  7. PROBIOTIC ACIDOPHILUS [LACTOBACILLUS ACIDOPHILUS] [Concomitant]
     Indication: Product used for unknown indication
  8. VITAMINS [Concomitant]
     Active Substance: VITAMINS
     Indication: Product used for unknown indication
  9. MIRALAX [Concomitant]
     Active Substance: POLYETHYLENE GLYCOL 3350
     Indication: Product used for unknown indication
  10. PROVIMIN [Concomitant]
     Indication: Product used for unknown indication
  11. BACTERIOSTATIC WATER [Concomitant]
     Active Substance: WATER
     Indication: Product used for unknown indication
  12. TAMIFLU [Concomitant]
     Active Substance: OSELTAMIVIR PHOSPHATE
     Indication: Product used for unknown indication

REACTIONS (6)
  - Influenza [Unknown]
  - Respiratory syncytial virus infection [Unknown]
  - Adverse drug reaction [Unknown]
  - Injection site urticaria [Recovered/Resolved]
  - Injection site erythema [Unknown]
  - Therapy interrupted [Unknown]
